FAERS Safety Report 9287203 (Version 2)
Quarter: 2013Q2

REPORT INFORMATION
  Report Type: Spontaneous
  Country: US (occurrence: US)
  Receive Date: 20130513
  Receipt Date: 20130521
  Transmission Date: 20140414
  Serious: Yes (Death, Life-Threatening, Hospitalization, Disabling)
  Sender: FDA-Public Use
  Company Number: US-GILEAD-2013-0075074

PATIENT
  Sex: Male

DRUGS (2)
  1. LETAIRIS [Suspect]
     Indication: PULMONARY HYPERTENSION
     Dosage: 5 MG, QD
     Route: 048
     Dates: start: 20130228
  2. LETAIRIS [Suspect]
     Indication: LIVER DISORDER

REACTIONS (4)
  - Pneumonia [Fatal]
  - Multi-organ failure [Fatal]
  - Respiratory failure [Fatal]
  - Septic shock [Fatal]
